FAERS Safety Report 12374808 (Version 12)
Quarter: 2021Q2

REPORT INFORMATION
  Report Type: Spontaneous
  Country: US (occurrence: US)
  Receive Date: 20160517
  Receipt Date: 20210510
  Transmission Date: 20210716
  Serious: No
  Sender: FDA-Public Use
  Company Number: US-PFIZER INC-2016246141

PATIENT
  Age: 81 Year
  Sex: Female
  Weight: 66 kg

DRUGS (8)
  1. XGEVA [Concomitant]
     Active Substance: DENOSUMAB
     Indication: NEOPLASM MALIGNANT
     Dosage: UNK UNK, MONTHLY
     Route: 030
     Dates: start: 2016, end: 20170911
  2. CALCIUM [Concomitant]
     Active Substance: CALCIUM
     Indication: SUPPLEMENTATION THERAPY
     Dosage: 1200 MG, DAILY
  3. IBRANCE [Suspect]
     Active Substance: PALBOCICLIB
     Dosage: 75 MG, ONCE DAILY 3 WEEKS ON AND 1 WEEK OFF
     Route: 048
     Dates: start: 201510, end: 20160731
  4. VISTARIL [HYDROXYZINE HYDROCHLORIDE] [Concomitant]
     Dosage: UNK
  5. IBRANCE [Suspect]
     Active Substance: PALBOCICLIB
     Dosage: 75 MG, ONCE A DAY, THREE WEEKS ON AND THEN ONE WEEK OFF
     Route: 048
     Dates: start: 20160805
  6. LETROZOLE. [Concomitant]
     Active Substance: LETROZOLE
     Indication: NEOPLASM MALIGNANT
     Dosage: 2.5 MG, 1X/DAY
     Route: 048
     Dates: start: 201510
  7. IBRANCE [Suspect]
     Active Substance: PALBOCICLIB
     Indication: BREAST CANCER FEMALE
     Dosage: 75 MG, UNK
     Route: 048
     Dates: start: 20150201, end: 2015
  8. VITAMIN D3 [Concomitant]
     Active Substance: CHOLECALCIFEROL
     Indication: SUPPLEMENTATION THERAPY
     Dosage: 4000 IU, DAILY

REACTIONS (15)
  - Pyrexia [Unknown]
  - Neoplasm progression [Unknown]
  - Limb injury [Unknown]
  - Hypoacusis [Unknown]
  - Therapeutic response unexpected [Unknown]
  - Fatigue [Unknown]
  - Toothache [Unknown]
  - Weight decreased [Recovering/Resolving]
  - Body height decreased [Unknown]
  - Chills [Unknown]
  - Pruritus [Recovering/Resolving]
  - Pustule [Unknown]
  - Decreased activity [Unknown]
  - Acne [Unknown]
  - Rash erythematous [Unknown]

NARRATIVE: CASE EVENT DATE: 201607
